FAERS Safety Report 7254912-4 (Version None)
Quarter: 2011Q1

REPORT INFORMATION
  Report Type: 
  Country: None (occurrence: None)
  Receive Date: 20110129
  Receipt Date: 20100316
  Transmission Date: 20110831
  Serious: No
  Sender: FDA-Public Use
  Company Number: US-ABBOTT-10P-163-0628686-00

PATIENT
  Sex: Female
  Weight: 70.37 kg

DRUGS (2)
  1. HUMIRA [Suspect]
     Indication: PSORIASIS
     Dosage: 80 MG
     Route: 058
     Dates: start: 20100124, end: 20100124
  2. HUMIRA [Suspect]
     Route: 058
     Dates: start: 20100301

REACTIONS (6)
  - PSORIASIS [None]
  - ERYTHEMA [None]
  - RASH GENERALISED [None]
  - DRY SKIN [None]
  - PRURITUS [None]
  - RASH PUSTULAR [None]
